FAERS Safety Report 10743734 (Version 1)
Quarter: 2015Q1

REPORT INFORMATION
  Report Type: Spontaneous
  Country: GB (occurrence: GB)
  Receive Date: 20150128
  Receipt Date: 20150128
  Transmission Date: 20150721
  Serious: Yes (Other)
  Sender: FDA-Public Use
  Company Number: GB-ACCORD-028164

PATIENT
  Age: 54 Year
  Sex: Female
  Weight: 95.25 kg

DRUGS (1)
  1. RAMIPRIL. [Suspect]
     Active Substance: RAMIPRIL
     Indication: HYPERTENSION
     Route: 048
     Dates: start: 20140115

REACTIONS (5)
  - Palpitations [Recovering/Resolving]
  - Arthralgia [Recovering/Resolving]
  - Nervousness [Recovering/Resolving]
  - Feeling abnormal [Unknown]
  - Anxiety [Recovering/Resolving]
